FAERS Safety Report 19745424 (Version 1)
Quarter: 2021Q3

REPORT INFORMATION
  Report Type: Spontaneous
  Country: DE (occurrence: DE)
  Receive Date: 20210825
  Receipt Date: 20210825
  Transmission Date: 20211014
  Serious: No
  Sender: FDA-Public Use
  Company Number: DE-MYLANLABS-2021M1054353

PATIENT

DRUGS (1)
  1. FASTJEKT JUNIOR [Suspect]
     Active Substance: EPINEPHRINE HYDROCHLORIDE
     Indication: PRODUCT USED FOR UNKNOWN INDICATION
     Dosage: UNK
     Route: 065

REACTIONS (1)
  - Device failure [Unknown]
